FAERS Safety Report 17665188 (Version 1)
Quarter: 2020Q2

REPORT INFORMATION
  Report Type: Spontaneous
  Country: US (occurrence: US)
  Receive Date: 20200413
  Receipt Date: 20200413
  Transmission Date: 20200713
  Serious: Yes (Death)
  Sender: FDA-Public Use
  Company Number: None

PATIENT
  Age: 91 Year
  Sex: Female
  Weight: 74.7 kg

DRUGS (15)
  1. FUROSEMIDE 40MG, ORAL [Concomitant]
  2. HYDRALAZINE 25MG, ORAL [Concomitant]
  3. BREO ELLIPTA, 100 -25MCG, ORAL [Concomitant]
  4. AMLODIPINE 5MG, ORAL [Concomitant]
  5. GLIPIZIDE ER 2.5MG, ORAL [Concomitant]
  6. ALLOPURINOL 100MG, ORAL [Concomitant]
  7. CALCITRIOL 0.5 MCG, ORAL [Concomitant]
  8. METOPROLOL SUCCINATE ER 50MG, ORAL [Concomitant]
  9. IMATINIB. [Suspect]
     Active Substance: IMATINIB MESYLATE
     Indication: GASTROINTESTINAL CARCINOMA
     Route: 048
     Dates: start: 20191125, end: 20200413
  10. FERROUS SULFATE 27MG, ORAL [Concomitant]
  11. MECLIZINE 25MG, ORAL [Concomitant]
  12. LIDOCAINE AND MENTHOL 4-4%, EXTERNAL [Concomitant]
  13. PANTOPRAZOLE SODIUM 40MG, ORAL [Concomitant]
  14. ALBUTEROL 108 MG, ORAL [Concomitant]
  15. ARANSEP 200 MCG/ML, IJ [Concomitant]

REACTIONS (1)
  - Death [None]

NARRATIVE: CASE EVENT DATE: 20200413
